FAERS Safety Report 6437576-9 (Version None)
Quarter: 2009Q4

REPORT INFORMATION
  Report Type: 
  Country: None (occurrence: None)
  Receive Date: 20091106
  Receipt Date: 20080908
  Transmission Date: 20100525
  Serious: Yes (Other)
  Sender: FDA-Public Use
  Company Number: WAES 0809USA01182

PATIENT
  Age: 80 Year
  Sex: Female

DRUGS (2)
  1. MEVACOR [Suspect]
     Indication: BLOOD CHOLESTEROL
     Dosage: PO
     Route: 048
     Dates: start: 20060901
  2. LAMICTAL [Concomitant]

REACTIONS (2)
  - LIP BLISTER [None]
  - STEVENS-JOHNSON SYNDROME [None]
